FAERS Safety Report 5931613-3 (Version None)
Quarter: 2008Q4

REPORT INFORMATION
  Report Type: 
  Country: None (occurrence: None)
  Receive Date: 20081027
  Receipt Date: 20081016
  Transmission Date: 20090506
  Serious: Yes (Other)
  Sender: FDA-Public Use
  Company Number: GB-ASTRAZENECA-2008GB01974

PATIENT
  Age: 85 Year
  Sex: Male

DRUGS (5)
  1. MEROPENEM [Suspect]
     Route: 042
     Dates: start: 20080912, end: 20080917
  2. CODEINE SUL TAB [Concomitant]
  3. HALOPERIDOL [Concomitant]
  4. MOVICOL [Concomitant]
  5. TRIMETHOPRIM [Concomitant]

REACTIONS (2)
  - BLISTER [None]
  - SCAB [None]
